FAERS Safety Report 4819477-2 (Version None)
Quarter: 2005Q4

REPORT INFORMATION
  Report Type: 
  Country: None (occurrence: None)
  Receive Date: 20051031
  Receipt Date: 20050715
  Transmission Date: 20060501
  Serious: No
  Sender: FDA-Public Use
  Company Number: 2005PV000396

PATIENT
  Age: 46 Year
  Sex: Female
  Weight: 88.905 kg

DRUGS (10)
  1. SYMLIN [Suspect]
     Indication: DIABETES MELLITUS INSULIN-DEPENDENT
     Dosage: 30 MCG; TID; SC
     Route: 058
     Dates: start: 20050601
  2. MINI MED NOVOLOG [Concomitant]
  3. INSULIN PUMP [Concomitant]
  4. LIPITOR [Concomitant]
  5. ZETIA [Concomitant]
  6. FUROSEMIDE [Concomitant]
  7. EFFEXOR [Concomitant]
  8. AVAPRO [Concomitant]
  9. PLAVIX [Concomitant]
  10. CLARINEX [Concomitant]

REACTIONS (2)
  - BLOOD GLUCOSE INCREASED [None]
  - DRUG INEFFECTIVE [None]
